FAERS Safety Report 15327811 (Version 1)
Quarter: 2018Q3

REPORT INFORMATION
  Report Type: Spontaneous
  Country: US (occurrence: US)
  Receive Date: 20180828
  Receipt Date: 20180828
  Transmission Date: 20181010
  Serious: No
  Sender: FDA-Public Use
  Company Number: US-ROCHE-1967594

PATIENT
  Sex: Male

DRUGS (8)
  1. PEGASYS [Suspect]
     Active Substance: PEGINTERFERON ALFA-2A
     Indication: PRODUCT USED FOR UNKNOWN INDICATION
     Route: 065
  2. SPIRIVA [Concomitant]
     Active Substance: TIOTROPIUM BROMIDE MONOHYDRATE
  3. ASPIRIN. [Concomitant]
     Active Substance: ASPIRIN
     Route: 065
  4. OMEPRAZOLE. [Concomitant]
     Active Substance: OMEPRAZOLE
     Route: 065
  5. JAKAFI [Suspect]
     Active Substance: RUXOLITINIB
     Indication: MYELOPROLIFERATIVE NEOPLASM
     Route: 048
     Dates: start: 20160208
  6. FISH OIL [Concomitant]
     Active Substance: FISH OIL
     Route: 065
  7. DULERA [Concomitant]
     Active Substance: FORMOTEROL FUMARATE DIHYDRATE\MOMETASONE FUROATE
  8. IRBESARTAN. [Concomitant]
     Active Substance: IRBESARTAN
     Route: 065

REACTIONS (3)
  - Dizziness [Not Recovered/Not Resolved]
  - Off label use [Unknown]
  - Nausea [Not Recovered/Not Resolved]
